FAERS Safety Report 19886803 (Version 1)
Quarter: 2021Q3

REPORT INFORMATION
  Report Type: Spontaneous
  Country: AU (occurrence: AU)
  Receive Date: 20210927
  Receipt Date: 20210927
  Transmission Date: 20211014
  Serious: Yes (Other)
  Sender: FDA-Public Use
  Company Number: AU-BRISTOL-MYERS SQUIBB COMPANY-BMS-2021-093351

PATIENT
  Age: 69 Year
  Sex: Female

DRUGS (3)
  1. JAKAVI [Suspect]
     Active Substance: RUXOLITINIB
     Indication: MYELOFIBROSIS
     Dosage: 20 MILLIGRAM, BID
     Route: 065
     Dates: start: 201812
  2. HYDROXYUREA. [Suspect]
     Active Substance: HYDROXYUREA
     Indication: PRODUCT USED FOR UNKNOWN INDICATION
     Dosage: 500 MILLIGRAM, QD
     Route: 065
  3. JAKAVI [Suspect]
     Active Substance: RUXOLITINIB
     Dosage: 10 MILLIGRAM, BID
     Route: 065
     Dates: start: 202010

REACTIONS (18)
  - Chimerism [Unknown]
  - Cytogenetic abnormality [Unknown]
  - Neutropenic colitis [Unknown]
  - Subdural haemorrhage [Unknown]
  - Electrolyte imbalance [Unknown]
  - Fibrosis [Unknown]
  - Fluid retention [Unknown]
  - Pleural effusion [Unknown]
  - Drug ineffective [Unknown]
  - Haemoglobin abnormal [Unknown]
  - Blood lactate dehydrogenase increased [Unknown]
  - Cytokine release syndrome [Unknown]
  - Respiratory failure [Unknown]
  - Hyperglycaemia [Unknown]
  - Oesophagitis [Unknown]
  - Acute graft versus host disease in skin [Unknown]
  - Fluid overload [Unknown]
  - Polyomavirus viraemia [Unknown]
